FAERS Safety Report 21691362 (Version 3)
Quarter: 2023Q1

REPORT INFORMATION
  Report Type: Spontaneous
  Country: JP (occurrence: JP)
  Receive Date: 20221207
  Receipt Date: 20230111
  Transmission Date: 20230417
  Serious: Yes (Hospitalization)
  Sender: FDA-Public Use
  Company Number: JP-TAKEDA-2022TJP078304

PATIENT
  Age: 37 Year
  Sex: Female

DRUGS (1)
  1. LEUPLIN [Suspect]
     Active Substance: LEUPROLIDE ACETATE
     Indication: Breast cancer female
     Dosage: 22.5 MILLIGRAM, Q6MONTHS?LEUPLIN PRO FOR INJECTION KIT 22.5 MG
     Route: 058

REACTIONS (1)
  - Phlebitis superficial [Unknown]
